FAERS Safety Report 8337448-9 (Version None)
Quarter: 2012Q2

REPORT INFORMATION
  Report Type: 
  Country: None (occurrence: None)
  Receive Date: 20120504
  Receipt Date: 20120425
  Transmission Date: 20120825
  Serious: Yes (Other)
  Sender: FDA-Public Use
  Company Number: US-PFIZER INC-2012102938

PATIENT
  Sex: Female
  Weight: 44 kg

DRUGS (1)
  1. LYRICA [Suspect]
     Indication: NERVE INJURY
     Dosage: 100MG IN THE MORNING AND 200MG AT NIGHT
     Route: 048

REACTIONS (7)
  - FOOD ALLERGY [None]
  - HYPERSENSITIVITY [None]
  - WEIGHT DECREASED [None]
  - SKIN DISORDER [None]
  - FEELING ABNORMAL [None]
  - WRONG TECHNIQUE IN DRUG USAGE PROCESS [None]
  - PSORIASIS [None]
